FAERS Safety Report 23048488 (Version 2)
Quarter: 2023Q4

REPORT INFORMATION
  Report Type: Report from Study
  Country: US (occurrence: US)
  Receive Date: 20231010
  Receipt Date: 20231012
  Transmission Date: 20240109
  Serious: No
  Sender: FDA-Public Use
  Company Number: US-002147023-NVSC2023US211047

PATIENT
  Sex: Female

DRUGS (18)
  1. TRIAMCINOLONE [Suspect]
     Active Substance: TRIAMCINOLONE
     Indication: Hidradenitis
     Dosage: UNK
     Route: 065
     Dates: start: 20220106, end: 20230215
  2. TRIAMCINOLONE [Suspect]
     Active Substance: TRIAMCINOLONE
     Dosage: UNK
     Route: 065
     Dates: start: 20230217
  3. CYCLOSPORINE [Suspect]
     Active Substance: CYCLOSPORINE
     Indication: Psoriasis
     Dosage: UNK
     Route: 065
     Dates: start: 20230623, end: 20230812
  4. CYCLOSPORINE [Suspect]
     Active Substance: CYCLOSPORINE
     Dosage: UNK
     Route: 065
     Dates: start: 20230412, end: 20230601
  5. CYCLOSPORINE [Suspect]
     Active Substance: CYCLOSPORINE
     Dosage: UNK
     Route: 065
     Dates: start: 20230217, end: 20230412
  6. DOXYCYCLINE [Suspect]
     Active Substance: DOXYCYCLINE
     Indication: Hidradenitis
     Dosage: UNK
     Route: 065
     Dates: start: 20210812, end: 20211028
  7. DOXYCYCLINE [Suspect]
     Active Substance: DOXYCYCLINE
     Dosage: UNK
     Route: 065
     Dates: start: 20211028
  8. DOXYCYCLINE [Suspect]
     Active Substance: DOXYCYCLINE
     Dosage: UNK
     Route: 065
     Dates: start: 20220516, end: 20220607
  9. DOXYCYCLINE [Suspect]
     Active Substance: DOXYCYCLINE
     Dosage: UNK
     Route: 065
     Dates: start: 20220607, end: 20220810
  10. DOXYCYCLINE [Suspect]
     Active Substance: DOXYCYCLINE
     Dosage: UNK
     Route: 065
     Dates: start: 20230412, end: 20230601
  11. PREDNISONE [Suspect]
     Active Substance: PREDNISONE
     Indication: Psoriasis
     Dosage: UNK
     Route: 065
     Dates: start: 20230126, end: 20230217
  12. PREDNISONE [Suspect]
     Active Substance: PREDNISONE
     Dosage: UNK
     Route: 065
     Dates: start: 20230217, end: 20230412
  13. SPIRONOLACTONE [Suspect]
     Active Substance: SPIRONOLACTONE
     Indication: Hidradenitis
     Dosage: UNK
     Route: 065
  14. CLOBETASOL [Suspect]
     Active Substance: CLOBETASOL
     Indication: Psoriasis
     Dosage: UNK
     Route: 065
     Dates: start: 20230412, end: 20230721
  15. MUPIROCIN [Suspect]
     Active Substance: MUPIROCIN
     Indication: Product used for unknown indication
     Dosage: UNK
     Route: 065
  16. CLOBETASOL [Suspect]
     Active Substance: CLOBETASOL
     Indication: Psoriasis
     Dosage: UNK
     Route: 065
     Dates: start: 20230215, end: 20230412
  17. CLOBETASOL [Suspect]
     Active Substance: CLOBETASOL
     Dosage: UNK
     Route: 065
     Dates: start: 20230412, end: 20230601
  18. CLOBETASOL [Suspect]
     Active Substance: CLOBETASOL
     Dosage: UNK
     Route: 065
     Dates: start: 20230601

REACTIONS (13)
  - Skin haemorrhage [Unknown]
  - Psoriasis [Unknown]
  - Skin exfoliation [Unknown]
  - Pruritus [Unknown]
  - Crepitations [Unknown]
  - Erythema [Unknown]
  - Skin mass [Unknown]
  - Dry skin [Unknown]
  - Pigmentation disorder [Unknown]
  - Skin irritation [Unknown]
  - Skin lesion [Unknown]
  - Drug ineffective [Unknown]
  - Product use in unapproved indication [Unknown]
